FAERS Safety Report 13084618 (Version 2)
Quarter: 2017Q1

REPORT INFORMATION
  Report Type: Spontaneous
  Country: ME (occurrence: ME)
  Receive Date: 20170104
  Receipt Date: 20170130
  Transmission Date: 20170428
  Serious: Yes (Other)
  Sender: FDA-Public Use
  Company Number: ME-PFIZER INC-2017000117

PATIENT
  Age: 69 Year
  Sex: Female

DRUGS (3)
  1. TRITACE [Suspect]
     Active Substance: RAMIPRIL
     Indication: ESSENTIAL HYPERTENSION
     Dosage: UNK, (1/2-1 TWICE DAILY)
     Route: 048
     Dates: start: 20160531, end: 201609
  2. PRINORM [Concomitant]
     Dosage: UNK
     Dates: start: 20160531
  3. EUTHYROX [Concomitant]
     Active Substance: LEVOTHYROXINE SODIUM
     Dosage: UNK
     Dates: start: 20160531

REACTIONS (2)
  - Cough [Not Recovered/Not Resolved]
  - Alopecia [Not Recovered/Not Resolved]

NARRATIVE: CASE EVENT DATE: 20160901
